FAERS Safety Report 22077651 (Version 6)
Quarter: 2024Q1

REPORT INFORMATION
  Report Type: Spontaneous
  Country: US (occurrence: US)
  Receive Date: 20230309
  Receipt Date: 20240311
  Transmission Date: 20240410
  Serious: No
  Sender: FDA-Public Use
  Company Number: US-BRISTOL-MYERS SQUIBB COMPANY-2023-033751

PATIENT
  Age: 65 Year
  Sex: Male
  Weight: 73.48 kg

DRUGS (2)
  1. REVLIMID [Suspect]
     Active Substance: LENALIDOMIDE
     Indication: Plasma cell myeloma in remission
     Route: 048
     Dates: start: 202212
  2. REVLIMID [Suspect]
     Active Substance: LENALIDOMIDE
     Indication: Plasma cell myeloma

REACTIONS (11)
  - Rash pruritic [Unknown]
  - Fatigue [Unknown]
  - Insomnia [Unknown]
  - Product dose omission issue [Unknown]
  - Myalgia [Unknown]
  - Heart rate increased [Unknown]
  - Diarrhoea [Recovering/Resolving]
  - Abdominal pain upper [Unknown]
  - Limb discomfort [Unknown]
  - Skin discolouration [Unknown]
  - Nasopharyngitis [Unknown]
